FAERS Safety Report 22214917 (Version 1)
Quarter: 2023Q2

REPORT INFORMATION
  Report Type: Spontaneous
  Country: FR (occurrence: FR)
  Receive Date: 20230415
  Receipt Date: 20230415
  Transmission Date: 20230721
  Serious: Yes (Death, Other)
  Sender: FDA-Public Use
  Company Number: FR-AFSSAPS-MP2023000726

PATIENT
  Age: 11 Day
  Sex: Female
  Weight: 2.8 kg

DRUGS (5)
  1. ALPRAZOLAM [Suspect]
     Active Substance: ALPRAZOLAM
     Indication: Death of relative
     Dosage: 0.5 MILLIGRAM, 3 TIMES A DAY (0,5 MG 3X/JOUR)
     Route: 065
     Dates: start: 202210, end: 20230217
  2. ZOPICLONE [Suspect]
     Active Substance: ZOPICLONE
     Indication: Death of relative
     Dosage: 7.5 MILLIGRAM, ONCE A DAY(7,5 MG /JOUR LE SOIR)(7.5 MG / DAY IN THE EVENING)
     Route: 065
     Dates: start: 202210, end: 20230217
  3. CLOMIPRAMINE [Suspect]
     Active Substance: CLOMIPRAMINE
     Indication: Death of relative
     Dosage: 25 MILLIGRAM, ONCE A DAY (25 MG /JOUR)(25MG/DAY)
     Route: 065
     Dates: start: 202210, end: 20230217
  4. FENTANYL [Concomitant]
     Active Substance: FENTANYL
     Indication: Congenital cystic kidney disease
     Dosage: 75 MICROGRAM (75 MICRO GRAMME, PATCH TRANSDERMIQUE)
     Route: 065
     Dates: end: 202212
  5. OXYCODONE HYDROCHLORIDE [Concomitant]
     Active Substance: OXYCODONE HYDROCHLORIDE
     Indication: Congenital cystic kidney disease
     Dosage: 10 MILLIGRAM (10 MG 6 FOIS/J)(10 MG 6 TIMES A DAY)
     Route: 065
     Dates: end: 202212

REACTIONS (4)
  - Sudden infant death syndrome [Fatal]
  - Hypotonia neonatal [Recovered/Resolved]
  - Agitation neonatal [Not Recovered/Not Resolved]
  - Postnatal growth restriction [Not Recovered/Not Resolved]

NARRATIVE: CASE EVENT DATE: 20230217
